APPROVED DRUG PRODUCT: RISPERIDONE
Active Ingredient: RISPERIDONE
Strength: 1MG/ML
Dosage Form/Route: SOLUTION;ORAL
Application: A078744 | Product #001
Applicant: WOCKHARDT BIO AG
Approved: Oct 8, 2009 | RLD: No | RS: No | Type: DISCN